FAERS Safety Report 10108992 (Version 1)
Quarter: 2014Q2

REPORT INFORMATION
  Report Type: Spontaneous
  Country: US (occurrence: US)
  Receive Date: 20140425
  Receipt Date: 20140425
  Transmission Date: 20141212
  Serious: Yes (Hospitalization)
  Sender: FDA-Public Use
  Company Number: US-BAYER-2014-059387

PATIENT
  Age: 33 Year
  Sex: Female
  Weight: 61.22 kg

DRUGS (10)
  1. YAZ [Suspect]
     Indication: DYSMENORRHOEA
  2. SOMA [Concomitant]
     Dosage: 350 MG, TABLET
     Route: 048
  3. ZOLOFT [Concomitant]
     Dosage: 50 MG,TABLET
     Route: 048
  4. XANAX [Concomitant]
     Dosage: 0.25 MG, UNK
     Route: 048
  5. XANAX [Concomitant]
     Dosage: 0.50 MG, PRN
     Route: 048
  6. VIGAMOX [Concomitant]
     Dosage: 0.5 %, EYE DROPS
  7. MOTRIN [Concomitant]
     Indication: INFLAMMATION
     Dosage: 600 MG, 1 TAB  TID
  8. TYLENOL WITH CODEINE [Concomitant]
     Indication: PAIN
     Dosage: 300 MG, EVERY 6 HOURS, PRN
  9. OXYCODONE/APAP [Concomitant]
     Indication: PAIN
     Dosage: 5/325 1 TAB AS EVERY 6 HOURS PRN
  10. PERCOCET [Concomitant]
     Indication: PAIN
     Dosage: 5/325 1 TAB EVERY 6 HOURS AS NEEDED

REACTIONS (1)
  - Deep vein thrombosis [None]
